FAERS Safety Report 7625804-3 (Version None)
Quarter: 2011Q3

REPORT INFORMATION
  Report Type: 
  Country: None (occurrence: None)
  Receive Date: 20110721
  Receipt Date: 20110712
  Transmission Date: 20111222
  Serious: Yes (Hospitalization)
  Sender: FDA-Public Use
  Company Number: US-ELI_LILLY_AND_COMPANY-US201107003829

PATIENT
  Age: 49 Year
  Sex: Female

DRUGS (3)
  1. ASPIRIN [Concomitant]
  2. EFFIENT [Suspect]
     Indication: PERCUTANEOUS CORONARY INTERVENTION
     Dosage: UNK, UNKNOWN
     Dates: start: 20110628
  3. INTEGRILIN [Concomitant]
     Dosage: UNK

REACTIONS (2)
  - HOSPITALISATION [None]
  - CHEST PAIN [None]
